FAERS Safety Report 6885929-7 (Version None)
Quarter: 2010Q3

REPORT INFORMATION
  Report Type: 
  Country: None (occurrence: None)
  Receive Date: 20100729
  Receipt Date: 20080811
  Transmission Date: 20110219
  Serious: No
  Sender: FDA-Public Use
  Company Number: US-PFIZER INC-2008049454

PATIENT
  Sex: Female
  Weight: 100 kg

DRUGS (23)
  1. CELEBREX [Suspect]
     Indication: ARTHRITIS
  2. LYRICA [Interacting]
     Indication: FIBROMYALGIA
     Route: 048
     Dates: start: 20080522
  3. DARVOCET [Interacting]
     Indication: ARTHRITIS
  4. ARTHROTEC [Concomitant]
  5. MONTELUKAST SODIUM [Concomitant]
  6. LISINOPRIL [Concomitant]
  7. NORVASC [Concomitant]
  8. TOPROL-XL [Concomitant]
  9. SEREVENT [Concomitant]
  10. ANTI-ASTHMATICS [Concomitant]
     Indication: ASTHMA
  11. ALLEGRA [Concomitant]
  12. RHINOCORT [Concomitant]
  13. PROGESTERONE [Concomitant]
  14. AMBIEN [Concomitant]
  15. RIFAXIMIN [Concomitant]
  16. PROTONIX [Concomitant]
  17. ZOLOFT [Concomitant]
  18. XOPENEX [Concomitant]
  19. ALL OTHER THERAPEUTIC PRODUCTS [Concomitant]
  20. VENTOLIN [Concomitant]
  21. ATROVENT [Concomitant]
  22. OPHTHALMOLOGICALS [Concomitant]
  23. PROMETHAZINE [Concomitant]

REACTIONS (9)
  - ARTHRALGIA [None]
  - ARTHRITIS [None]
  - DRUG EFFECT DECREASED [None]
  - DRUG INTERACTION [None]
  - FLUID RETENTION [None]
  - INCREASED APPETITE [None]
  - RASH [None]
  - URTICARIA [None]
  - WEIGHT INCREASED [None]
